FAERS Safety Report 14026764 (Version 1)
Quarter: 2017Q3

REPORT INFORMATION
  Report Type: Spontaneous
  Country: CA (occurrence: CA)
  Receive Date: 20170929
  Receipt Date: 20170929
  Transmission Date: 20171128
  Serious: No
  Sender: FDA-Public Use
  Company Number: CA-NOVEN PHARMACEUTICALS, INC.-CA2017000923

PATIENT

DRUGS (1)
  1. ESTRADIOL/NORETHISTERONE ACETATE [Suspect]
     Active Substance: ESTRADIOL\NORETHINDRONE ACETATE
     Indication: MENOPAUSAL SYMPTOMS
     Dosage: 1 DF, EVERY 4 DAYS
     Route: 062
     Dates: start: 20151113, end: 20170526

REACTIONS (2)
  - Anxiety [Unknown]
  - Breast tenderness [Recovered/Resolved]

NARRATIVE: CASE EVENT DATE: 20170425
